FAERS Safety Report 25085165 (Version 1)
Quarter: 2025Q1

REPORT INFORMATION
  Report Type: Spontaneous
  Country: US (occurrence: None)
  Receive Date: 20250314
  Receipt Date: 20250314
  Transmission Date: 20250409
  Serious: Yes (Other)
  Sender: FDA-CTU
  Company Number: None

PATIENT
  Age: 29 Year
  Sex: Female
  Weight: 58.6 kg

DRUGS (3)
  1. FERRLECIT [Suspect]
     Active Substance: SODIUM FERRIC GLUCONATE COMPLEX
     Indication: Anaemia
     Route: 042
     Dates: start: 20250313, end: 20250313
  2. Levothyroxine 25 mcg PO daily [Concomitant]
  3. Prenatal Vitamin PO daily [Concomitant]

REACTIONS (6)
  - Feeling abnormal [None]
  - Hypotension [None]
  - Nausea [None]
  - Pallor [None]
  - Paraesthesia oral [None]
  - Therapy cessation [None]

NARRATIVE: CASE EVENT DATE: 20250313
